FAERS Safety Report 9652499 (Version 1)
Quarter: 2013Q4

REPORT INFORMATION
  Report Type: Report from Study
  Country: SE (occurrence: SE)
  Receive Date: 20131029
  Receipt Date: 20131029
  Transmission Date: 20140711
  Serious: Yes (Hospitalization, Other)
  Sender: FDA-Public Use
  Company Number: SE-ROCHE-1294317

PATIENT
  Age: 47 Year
  Sex: Female
  Weight: 60 kg

DRUGS (13)
  1. BEVACIZUMAB [Suspect]
     Indication: BREAST CANCER
     Route: 042
     Dates: start: 20130611, end: 20130725
  2. DOXORUBICIN/DOXORUBICIN HYDROCHLORIDE [Suspect]
     Indication: BREAST CANCER
     Route: 042
     Dates: start: 20130611, end: 20130725
  3. ERIBULIN MESILATE [Suspect]
     Indication: BREAST CANCER
     Route: 042
     Dates: start: 20130821
  4. VFEND [Concomitant]
     Indication: LUNG INFECTION
     Route: 048
     Dates: start: 20130813
  5. MERONEM [Concomitant]
     Indication: INFECTION
     Route: 042
     Dates: start: 20130812, end: 20130822
  6. MERONEM [Concomitant]
     Indication: PNEUMONIA
  7. EUSAPRIM FORTE [Concomitant]
     Indication: INFECTION
     Route: 065
     Dates: start: 20130809
  8. EUSAPRIM FORTE [Concomitant]
     Indication: PNEUMONIA
     Dosage: DOSE: 160/800 MG
     Route: 048
     Dates: start: 20130810, end: 20130823
  9. AVELOX [Concomitant]
     Indication: INFECTION
  10. INVANZ [Concomitant]
     Indication: INFECTION
     Route: 048
     Dates: start: 20130810, end: 20130812
  11. INVANZ [Concomitant]
     Indication: PNEUMONIA
  12. PREDNISOLONE [Concomitant]
  13. DOXYFERM [Concomitant]
     Indication: PNEUMONIA
     Route: 048
     Dates: start: 20130808

REACTIONS (2)
  - Pyrexia [Recovered/Resolved]
  - Pneumonia [Recovered/Resolved]
